FAERS Safety Report 25344782 (Version 1)
Quarter: 2025Q2

REPORT INFORMATION
  Report Type: Report from Study
  Country: US (occurrence: US)
  Receive Date: 20250522
  Receipt Date: 20250522
  Transmission Date: 20250717
  Serious: Yes (Hospitalization, Other)
  Sender: ABBVIE
  Company Number: US-ABBVIE-6253279

PATIENT
  Age: 73 Year
  Sex: Male
  Weight: 117.93 kg

DRUGS (1)
  1. HUMIRA [Suspect]
     Active Substance: ADALIMUMAB
     Indication: Psoriasis
     Dosage: FORM STRENGTH: 40 MILLIGRAMS
     Route: 058
     Dates: start: 20150115, end: 202312

REACTIONS (6)
  - Device breakage [Recovering/Resolving]
  - Back pain [Not Recovered/Not Resolved]
  - Back disorder [Unknown]
  - Psoriasis [Unknown]
  - Visual impairment [Unknown]
  - Procedural haemorrhage [Unknown]

NARRATIVE: CASE EVENT DATE: 20200101
